FAERS Safety Report 19586724 (Version 2)
Quarter: 2022Q3

REPORT INFORMATION
  Report Type: Report from Study
  Country: US (occurrence: US)
  Receive Date: 20210720
  Receipt Date: 20220829
  Transmission Date: 20221027
  Serious: Yes (Hospitalization, Other)
  Sender: FDA-Public Use
  Company Number: US-BAUSCH-BL-2021-025305

PATIENT
  Age: 60 Year
  Sex: Male

DRUGS (1)
  1. XIFAXAN [Suspect]
     Active Substance: RIFAXIMIN
     Indication: Hepatic encephalopathy
     Route: 048

REACTIONS (7)
  - Foot fracture [Unknown]
  - Electrolyte imbalance [Unknown]
  - Hypotension [Unknown]
  - Pain [Unknown]
  - Fall [Unknown]
  - Platelet count decreased [Unknown]
  - Haematochezia [Unknown]
